FAERS Safety Report 7619899-0 (Version None)
Quarter: 2011Q3

REPORT INFORMATION
  Report Type: 
  Country: None (occurrence: None)
  Receive Date: 20110719
  Receipt Date: 20110705
  Transmission Date: 20111222
  Serious: Yes (Other)
  Sender: FDA-Public Use
  Company Number: CZ-SANOFI-AVENTIS-2011SA044386

PATIENT
  Age: 76 Year
  Sex: Male
  Weight: 75 kg

DRUGS (6)
  1. TELMISARTAN [Concomitant]
     Route: 065
  2. METFORMIN HCL [Concomitant]
     Route: 065
  3. DRONEDARONE HCL [Suspect]
     Indication: ATRIAL FIBRILLATION
     Route: 048
     Dates: start: 20101108, end: 20101122
  4. BISOPROLOL [Concomitant]
     Route: 065
  5. NITRENDIPINE [Concomitant]
     Route: 065
  6. WARFARIN SODIUM [Concomitant]
     Route: 065

REACTIONS (1)
  - CARDIAC FAILURE [None]
